FAERS Safety Report 14175193 (Version 1)
Quarter: 2017Q4

REPORT INFORMATION
  Report Type: Spontaneous
  Country: US (occurrence: US)
  Receive Date: 20171109
  Receipt Date: 20171109
  Transmission Date: 20180321
  Serious: No
  Sender: FDA-Public Use
  Company Number: US-009507513-1710USA009778

PATIENT
  Sex: Male

DRUGS (1)
  1. JANUVIA [Suspect]
     Active Substance: SITAGLIPTIN PHOSPHATE
     Dosage: 100 MG TABLET, DAILY
     Route: 048

REACTIONS (3)
  - No adverse event [Unknown]
  - Intentional dose omission [Unknown]
  - Product quality issue [Unknown]

NARRATIVE: CASE EVENT DATE: 201710
